FAERS Safety Report 15417230 (Version 2)
Quarter: 2018Q4

REPORT INFORMATION
  Report Type: Report from Study
  Country: US (occurrence: US)
  Receive Date: 20180924
  Receipt Date: 20181018
  Transmission Date: 20190204
  Serious: Yes (Death, Other)
  Sender: FDA-Public Use
  Company Number: US-GILEAD-2018-0364446

PATIENT
  Age: 49 Year
  Sex: Female
  Weight: 62.13 kg

DRUGS (13)
  1. PREDNISONE. [Concomitant]
     Active Substance: PREDNISONE
  2. OXYCODONE                          /00045603/ [Concomitant]
     Active Substance: OXYCODONE
  3. SILDENAFIL. [Concomitant]
     Active Substance: SILDENAFIL
  4. TRAMADOL                           /00599202/ [Concomitant]
     Active Substance: TRAMADOL
  5. POTASSIUM                          /00031402/ [Concomitant]
     Active Substance: POTASSIUM
  6. LORAZEPAM. [Concomitant]
     Active Substance: LORAZEPAM
  7. MECLIZINE [Concomitant]
     Active Substance: MECLIZINE HYDROCHLORIDE
  8. AMBRISENTAN [Suspect]
     Active Substance: AMBRISENTAN
     Indication: PULMONARY ARTERIAL HYPERTENSION
     Dosage: 10 MG, QD
     Route: 048
     Dates: start: 20161123
  9. MYCOPHENOLATE [Concomitant]
     Active Substance: MYCOPHENOLIC ACID
  10. UPTRAVI [Concomitant]
     Active Substance: SELEXIPAG
  11. FUROSEMIDE. [Concomitant]
     Active Substance: FUROSEMIDE
  12. MULTIVITAMIN                       /00097801/ [Concomitant]
     Active Substance: VITAMINS
  13. OMEPRAZOLE                         /00661202/ [Concomitant]
     Active Substance: OMEPRAZOLE SODIUM

REACTIONS (1)
  - Death [Fatal]

NARRATIVE: CASE EVENT DATE: 20180823
